FAERS Safety Report 8065553-3 (Version None)
Quarter: 2012Q1

REPORT INFORMATION
  Report Type: 
  Country: None (occurrence: None)
  Receive Date: 20120124
  Receipt Date: 20120118
  Transmission Date: 20120608
  Serious: Yes (Other)
  Sender: FDA-Public Use
  Company Number: CR-BAYER-2012-006052

PATIENT
  Sex: Male

DRUGS (1)
  1. AVELOX [Suspect]

REACTIONS (1)
  - EXTRAPYRAMIDAL DISORDER [None]
